FAERS Safety Report 9420675 (Version 2)
Quarter: 2013Q3

REPORT INFORMATION
  Report Type: Spontaneous
  Country: KR (occurrence: None)
  Receive Date: 20130723
  Receipt Date: 20130805
  Transmission Date: 20140515
  Serious: Yes (Hospitalization)
  Sender: FDA-Public Use
  Company Number: DSJ-2013-16223

PATIENT
  Age: 75 Year
  Sex: Female

DRUGS (9)
  1. OLMETEC [Suspect]
     Indication: ESSENTIAL HYPERTENSION
     Route: 048
     Dates: start: 20121121, end: 20130320
  2. CILNIDIPINE [Concomitant]
  3. ERODOS [Concomitant]
  4. FEROBA YOU [Concomitant]
  5. SOLONDO [Concomitant]
  6. LANSTON LFDT [Concomitant]
  7. ADALAT [Concomitant]
  8. RAMNOS [Concomitant]
  9. ATACAND [Concomitant]

REACTIONS (10)
  - Diarrhoea [None]
  - Dizziness [None]
  - Nausea [None]
  - Cachexia [None]
  - Cough [None]
  - Incorrect dose administered [None]
  - Renal impairment [None]
  - Albuminuria [None]
  - Oedema [None]
  - Condition aggravated [None]
